FAERS Safety Report 8922734 (Version 1)
Quarter: 2012Q4

REPORT INFORMATION
  Report Type: 
  Country: SE (occurrence: SE)
  Receive Date: 20121123
  Receipt Date: 20121123
  Transmission Date: 20130627
  Serious: Yes (Hospitalization)
  Sender: FDA-Public Use
  Company Number: SE-PFIZER INC-2012290136

PATIENT
  Age: 73 Year
  Sex: Male
  Weight: 73.6 kg

DRUGS (11)
  1. GENOTROPIN [Suspect]
     Dosage: 0.4 mg, 1x/day, 7 injections/week
     Route: 058
     Dates: start: 19980414
  2. SELOKEN [Concomitant]
     Indication: ACUTE MYOCARDIAL INFARCTION
     Dosage: UNK
     Dates: start: 19920301
  3. TROMBYL [Concomitant]
     Indication: ACUTE MYOCARDIAL INFARCTION
     Dosage: UNK
     Dates: start: 19920301
  4. LEVOTHYROXINE [Concomitant]
     Indication: TSH DECREASED
     Dosage: UNK
     Dates: start: 19960301
  5. TESTOSTERONE [Concomitant]
     Indication: LUTEINIZING HORMONE DEFICIENCY
     Dosage: UNK
     Dates: start: 19960301
  6. TESTOSTERONE [Concomitant]
     Indication: FOLLICLE-STIMULATING HORMONE DEFICIENCY
  7. DESMOPRESSIN [Concomitant]
     Indication: ADH DECREASED
     Dosage: UNK
     Dates: start: 19960501
  8. LIPITOR [Concomitant]
     Indication: HYPERLIPIDAEMIA
     Dosage: UNK
     Dates: start: 19991110
  9. AMLODIPINE [Concomitant]
     Indication: HYPERTENSION
     Dosage: UNK
     Dates: start: 20000328
  10. REMERON [Concomitant]
     Indication: DEPRESSIVE DISORDER
     Dosage: UNK
     Dates: start: 20030410
  11. HYDROCORTISONE [Concomitant]
     Indication: ACTH DECREASED
     Dosage: UNK
     Dates: start: 20030527

REACTIONS (1)
  - Nervous system disorder [Unknown]
